FAERS Safety Report 6453477-4 (Version None)
Quarter: 2009Q4

REPORT INFORMATION
  Report Type: 
  Country: None (occurrence: None)
  Receive Date: 20091124
  Receipt Date: 20091113
  Transmission Date: 20100525
  Serious: Yes (Hospitalization)
  Sender: FDA-Public Use
  Company Number: FR-PFIZER INC-2009297276

PATIENT
  Age: 80 Year
  Sex: Female

DRUGS (12)
  1. ARTOTEC [Suspect]
     Dosage: UNK
     Route: 048
     Dates: start: 20090801, end: 20090804
  2. KETOPROFEN [Suspect]
     Dosage: UNK
     Route: 003
     Dates: start: 20090801, end: 20090804
  3. PREVISCAN [Suspect]
     Dosage: UNK
     Route: 048
     Dates: end: 20090804
  4. TRAMADOL [Suspect]
     Dosage: 150 MG, 1X/DAY
     Route: 048
     Dates: start: 20090801, end: 20090804
  5. CRESTOR [Concomitant]
     Dosage: 5 MG, UNK
  6. COVERSYL [Concomitant]
     Dosage: 5 MG, UNK
  7. LASILIX [Concomitant]
     Dosage: 20 MG, UNK
  8. DAFLON [Concomitant]
     Dosage: 500 MG, UNK
  9. LERCANIDIPINE [Concomitant]
     Dosage: 20 MG, UNK
  10. FLECAINIDE ACETATE [Concomitant]
     Dosage: 150 MG, UNK
  11. CARDENSIEL [Concomitant]
     Dosage: 2.5 MG, UNK
  12. INNOHEP [Concomitant]
     Indication: PROPHYLAXIS

REACTIONS (2)
  - HAEMATOMA [None]
  - INTERNATIONAL NORMALISED RATIO INCREASED [None]
